FAERS Safety Report 5096164-X (Version None)
Quarter: 2006Q3

REPORT INFORMATION
  Report Type: 
  Country: None (occurrence: None)
  Receive Date: 20060831
  Receipt Date: 20060816
  Transmission Date: 20061208
  Serious: Yes (Death, Hospitalization)
  Sender: FDA-Public Use
  Company Number: 2006CT000706

PATIENT
  Age: 52 Year
  Sex: Female
  Weight: 100.7 kg

DRUGS (10)
  1. VENTAVIS [Suspect]
     Indication: PULMONARY HYPERTENSION
     Dosage: 5 UG;5XD;INH
     Route: 055
     Dates: start: 20050615, end: 20060809
  2. ALBUTEROL [Concomitant]
  3. ASPIRIN [Concomitant]
  4. WARFARIN SODIUM [Concomitant]
  5. NEXIUM [Concomitant]
  6. KLOR-CON [Concomitant]
  7. AMBIEN [Concomitant]
  8. ZOLOFT [Concomitant]
  9. FUROSEMIDE [Concomitant]
  10. LANTUS [Concomitant]

REACTIONS (11)
  - ASTHENIA [None]
  - CYANOSIS [None]
  - DIZZINESS [None]
  - DYSPNOEA [None]
  - ESCHERICHIA BACTERAEMIA [None]
  - HYPOTENSION [None]
  - JAUNDICE [None]
  - METABOLIC ACIDOSIS [None]
  - RENAL FAILURE [None]
  - TACHYCARDIA [None]
  - UROSEPSIS [None]
